FAERS Safety Report 4805280-6 (Version None)
Quarter: 2005Q4

REPORT INFORMATION
  Report Type: 
  Country: None (occurrence: None)
  Receive Date: 20051020
  Receipt Date: 20051011
  Transmission Date: 20060501
  Serious: Yes (Death, Disabling)
  Sender: FDA-Public Use
  Company Number: US-MERCK-0510USA06710

PATIENT

DRUGS (2)
  1. VIOXX [Suspect]
     Route: 048
  2. CELEBREX [Suspect]
     Route: 065

REACTIONS (4)
  - CARDIOVASCULAR DISORDER [None]
  - DEATH [None]
  - ISCHAEMIA [None]
  - POLYTRAUMATISM [None]
